FAERS Safety Report 10171054 (Version 1)
Quarter: 2014Q2

REPORT INFORMATION
  Report Type: Spontaneous
  Country: US (occurrence: None)
  Receive Date: 20140513
  Receipt Date: 20140513
  Transmission Date: 20141212
  Serious: Yes (Hospitalization)
  Sender: FDA-Public Use
  Company Number: None

PATIENT
  Age: 03 Year
  Sex: Male
  Weight: 15 kg

DRUGS (1)
  1. APRODINE [Suspect]
     Indication: MULTIPLE ALLERGIES
     Dosage: 1 TABLET ONCE ORAL
     Route: 048
     Dates: start: 20140427

REACTIONS (3)
  - Screaming [None]
  - Tremor [None]
  - Hyperhidrosis [None]
